FAERS Safety Report 9054940 (Version 4)
Quarter: 2013Q4

REPORT INFORMATION
  Report Type: Spontaneous
  Country: US (occurrence: US)
  Receive Date: 20130208
  Receipt Date: 20131021
  Transmission Date: 20140711
  Serious: Yes (Other)
  Sender: FDA-Public Use
  Company Number: US-PFIZER INC-2013049245

PATIENT
  Age: 41 Year
  Sex: Female
  Weight: 109 kg

DRUGS (10)
  1. LYRICA [Suspect]
     Indication: FIBROMYALGIA
     Dosage: 100 MG, 2X/DAY
     Dates: start: 201202
  2. TRAZODONE HCL [Suspect]
     Indication: DEPRESSION
     Dosage: UNK, 1X/DAY
  3. TRAZODONE HCL [Suspect]
     Indication: INSOMNIA
  4. MELOXICAM [Suspect]
     Indication: OSTEOARTHRITIS
     Dosage: 50 MG, 1X/DAY
  5. CITALOPRAM [Suspect]
     Indication: DEPRESSION
     Dosage: 20 MG, 1X/DAY
  6. WELLBUTRIN SR [Suspect]
     Indication: DEPRESSION
     Dosage: 150 MG, 1X/DAY
  7. BUTALBITAL, ACETAMINOPHEN + CAFFEINE [Concomitant]
     Indication: MIGRAINE
     Dosage: UNK, 1X/DAY
  8. VITAMIN B12 [Concomitant]
     Indication: ANAEMIA
     Dosage: UNK, 1X/DAY
     Route: 060
  9. CYCLOBENZAPRINE [Concomitant]
     Indication: ANXIETY
     Dosage: UNK
  10. TRAMADOL [Concomitant]
     Indication: PAIN IN EXTREMITY
     Dosage: 50 MG, AS NEEDED

REACTIONS (9)
  - Tarsal tunnel syndrome [Unknown]
  - Tendonitis [Unknown]
  - Vision blurred [Not Recovered/Not Resolved]
  - Weight increased [Unknown]
  - Gait disturbance [Unknown]
  - Dysstasia [Unknown]
  - Osteoarthritis [Not Recovered/Not Resolved]
  - Depression [Not Recovered/Not Resolved]
  - Fibromyalgia [Unknown]
